FAERS Safety Report 25521416 (Version 2)
Quarter: 2025Q4

REPORT INFORMATION
  Report Type: Spontaneous
  Country: JP (occurrence: JP)
  Receive Date: 20250706
  Receipt Date: 20251103
  Transmission Date: 20260118
  Serious: Yes (Life-Threatening, Other)
  Sender: MERCK SHARP & DOHME LLC
  Company Number: JP-009507513-2303890

PATIENT
  Age: 83 Year
  Sex: Male
  Weight: 75 kg

DRUGS (6)
  1. SUGAMMADEX SODIUM [Suspect]
     Active Substance: SUGAMMADEX SODIUM
     Indication: Neuromuscular blockade reversal
     Dosage: TIME INTERVAL: TOTAL
     Route: 042
     Dates: start: 20250526, end: 20250526
  2. PROPOFOL [Concomitant]
     Active Substance: PROPOFOL
     Indication: Anaesthesia procedure
     Route: 041
     Dates: start: 20250526, end: 20250526
  3. REMIFENTANIL HYDROCHLORIDE [Concomitant]
     Active Substance: REMIFENTANIL HYDROCHLORIDE
     Indication: Anaesthesia procedure
     Route: 041
     Dates: start: 20250526, end: 20250526
  4. ROCURONIUM BROMIDE [Concomitant]
     Active Substance: ROCURONIUM BROMIDE
     Indication: Muscle relaxant therapy
     Dosage: TIME INTERVAL: TOTAL
     Route: 042
     Dates: start: 20250526, end: 20250526
  5. EPHEDRINE HYDROCHLORIDE [Concomitant]
     Active Substance: EPHEDRINE HYDROCHLORIDE
     Indication: Vasopressive therapy
     Dosage: TIME INTERVAL: TOTAL
     Route: 042
     Dates: start: 20250526, end: 20250526
  6. FENTANYL CITRATE [Concomitant]
     Active Substance: FENTANYL CITRATE
     Indication: Analgesic therapy
     Dosage: TIME INTERVAL: TOTAL
     Route: 042
     Dates: start: 20250526, end: 20250526

REACTIONS (1)
  - Anaphylactic shock [Recovered/Resolved]

NARRATIVE: CASE EVENT DATE: 20250526
